FAERS Safety Report 8112057-5 (Version None)
Quarter: 2011Q4

REPORT INFORMATION
  Report Type: 
  Country: None (occurrence: None)
  Receive Date: 20111223
  Receipt Date: 20111031
  Transmission Date: 20120403
  Serious: Yes (Other)
  Sender: FDA-Public Use
  Company Number: PHEH2011US07564

PATIENT
  Sex: Female

DRUGS (2)
  1. FEMARA [Suspect]
  2. LETROZOLE [Suspect]

REACTIONS (3)
  - PAIN [None]
  - METASTASES TO BONE [None]
  - MOOD SWINGS [None]
